FAERS Safety Report 7001057-4 (Version None)
Quarter: 2010Q3

REPORT INFORMATION
  Report Type: 
  Country: None (occurrence: None)
  Receive Date: 20100920
  Receipt Date: 20100910
  Transmission Date: 20110219
  Serious: Yes (Death)
  Sender: FDA-Public Use
  Company Number: US-AMGEN-QUU422498

PATIENT
  Sex: Male

DRUGS (4)
  1. NPLATE [Suspect]
     Indication: IDIOPATHIC THROMBOCYTOPENIC PURPURA
     Dates: start: 20091006, end: 20091011
  2. IMMU-G [Concomitant]
     Dates: start: 20090413
  3. RITUXIMAB [Concomitant]
     Dates: start: 20030601
  4. CYCLOPHOSPHAMIDE [Concomitant]
     Dates: start: 20070301

REACTIONS (2)
  - RESPIRATORY FAILURE [None]
  - SEPSIS [None]
